FAERS Safety Report 16779754 (Version 2)
Quarter: 2019Q3

REPORT INFORMATION
  Report Type: Spontaneous
  Country: US (occurrence: US)
  Receive Date: 20190906
  Receipt Date: 20190927
  Transmission Date: 20191005
  Serious: Yes (Death, Life-Threatening, Hospitalization)
  Sender: FDA-Public Use
  Company Number: US-AXELLIA-002665

PATIENT
  Age: 60 Year
  Sex: Female
  Weight: 92 kg

DRUGS (3)
  1. VANCOMYCIN [Suspect]
     Active Substance: VANCOMYCIN
     Indication: STAPHYLOCOCCAL INFECTION
     Dosage: STRENGTH: 500 MG X 2, ONCE
     Route: 042
     Dates: start: 20190816, end: 20190816
  2. HEPARIN [Concomitant]
     Active Substance: HEPARIN SODIUM
     Dosage: 4000 UNITS
     Dates: start: 20190816
  3. CALCITRIOL. [Concomitant]
     Active Substance: CALCITRIOL
     Dates: start: 20190816

REACTIONS (2)
  - Cardiac arrest [Unknown]
  - Death [Fatal]

NARRATIVE: CASE EVENT DATE: 20190820
